FAERS Safety Report 4408243-8 (Version None)
Quarter: 2004Q3

REPORT INFORMATION
  Report Type: 
  Country: None (occurrence: None)
  Receive Date: 20040726
  Receipt Date: 20040726
  Transmission Date: 20050211
  Serious: No
  Sender: FDA-Public Use
  Company Number: None

PATIENT
  Age: 45 Year
  Sex: Female
  Weight: 48.9885 kg

DRUGS (1)
  1. LEVAQUIN [Suspect]
     Indication: DIVERTICULITIS
     Dosage: 1 TABLET PER DAY ORAL
     Route: 048
     Dates: start: 20040509, end: 20040513

REACTIONS (5)
  - ANXIETY [None]
  - CHEST PAIN [None]
  - DIZZINESS [None]
  - HEART RATE IRREGULAR [None]
  - NAUSEA [None]
